FAERS Safety Report 14161506 (Version 2)
Quarter: 2017Q4

REPORT INFORMATION
  Report Type: Spontaneous
  Country: AR (occurrence: AR)
  Receive Date: 20171106
  Receipt Date: 20171115
  Transmission Date: 20180321
  Serious: Yes (Other)
  Sender: FDA-Public Use
  Company Number: AR-PFIZER INC-2017476911

PATIENT
  Age: 77 Year
  Sex: Male

DRUGS (1)
  1. SUTENT [Suspect]
     Active Substance: SUNITINIB MALATE
     Indication: METASTATIC RENAL CELL CARCINOMA
     Dosage: UNK, DAILY
     Dates: start: 20160519, end: 20170925

REACTIONS (3)
  - Fall [Recovering/Resolving]
  - Upper limb fracture [Recovering/Resolving]
  - Tendon injury [Recovering/Resolving]

NARRATIVE: CASE EVENT DATE: 20171027
